FAERS Safety Report 4598135-6 (Version None)
Quarter: 2005Q1

REPORT INFORMATION
  Report Type: 
  Country: None (occurrence: None)
  Receive Date: 20050301
  Receipt Date: 20050301
  Transmission Date: 20050727
  Serious: Yes (Hospitalization)
  Sender: FDA-Public Use
  Company Number: None

PATIENT
  Age: 61 Year
  Sex: Male
  Weight: 78.4 kg

DRUGS (4)
  1. ADDERALL XR 40 [Suspect]
     Indication: ATTENTION DEFICIT/HYPERACTIVITY DISORDER
     Dosage: 40 MG DAILY
     Dates: start: 20030117, end: 20041129
  2. ADDERALL 10 [Suspect]
     Dosage: 40 MG DAILY
     Dates: end: 20000401
  3. INDOMETHACIN [Concomitant]
  4. SERTRALINE HCL [Concomitant]

REACTIONS (5)
  - ATRIAL FIBRILLATION [None]
  - DIZZINESS [None]
  - DYSPNOEA EXERTIONAL [None]
  - FATIGUE [None]
  - SLEEP APNOEA SYNDROME [None]
